FAERS Safety Report 7815421-4 (Version None)
Quarter: 2011Q4

REPORT INFORMATION
  Report Type: 
  Country: None (occurrence: None)
  Receive Date: 20111014
  Receipt Date: 20111003
  Transmission Date: 20120403
  Serious: Yes (Hospitalization, Other)
  Sender: FDA-Public Use
  Company Number: PHHY2011FR88619

PATIENT
  Sex: Male

DRUGS (2)
  1. CERTICAN [Suspect]
     Dosage: UNK UKN, UNK
     Route: 048
     Dates: start: 20070814, end: 20110908
  2. NEORAL [Suspect]
     Dosage: UNK UKN, UNK
     Route: 048
     Dates: start: 20070814, end: 20110908

REACTIONS (7)
  - PLATELET COUNT DECREASED [None]
  - PAIN IN EXTREMITY [None]
  - THROMBOPHLEBITIS SUPERFICIAL [None]
  - THROMBOSIS [None]
  - IMMUNOSUPPRESSANT DRUG LEVEL INCREASED [None]
  - BLOOD CREATININE INCREASED [None]
  - THROMBOCYTOPENIA [None]
